FAERS Safety Report 6968394-0 (Version None)
Quarter: 2010Q3

REPORT INFORMATION
  Report Type: 
  Country: None (occurrence: None)
  Receive Date: 20100907
  Receipt Date: 20100827
  Transmission Date: 20110219
  Serious: Yes (Death)
  Sender: FDA-Public Use
  Company Number: US-ROCHE-724280

PATIENT
  Sex: Female

DRUGS (2)
  1. AVASTIN [Suspect]
     Route: 042
     Dates: start: 20100301, end: 20100712
  2. ABRAXANE [Suspect]
     Route: 065
     Dates: start: 20100301, end: 20100712

REACTIONS (1)
  - DEATH [None]
